FAERS Safety Report 25886519 (Version 1)
Quarter: 2025Q4

REPORT INFORMATION
  Report Type: Report from Study
  Country: EU (occurrence: EU)
  Receive Date: 20251006
  Receipt Date: 20251006
  Transmission Date: 20260117
  Serious: Yes (Other)
  Sender: BRACCO
  Company Number: None

PATIENT
  Age: 63 Year
  Sex: Female

DRUGS (9)
  1. CEFTRIAXONE SODIUM [Suspect]
     Active Substance: CEFTRIAXONE SODIUM
     Indication: Prophylaxis
     Dosage: 1 G, SINGLE
     Route: 042
     Dates: start: 20220126, end: 20220201
  2. SUCCINYLCHOLINE CHLORIDE [Suspect]
     Active Substance: SUCCINYLCHOLINE CHLORIDE
     Indication: Anaesthesia
     Dosage: UNK, SINGLE
     Route: 042
     Dates: start: 20220131, end: 20220131
  3. EPHEDRINE [Suspect]
     Active Substance: EPHEDRINE
     Indication: Product used for unknown indication
     Dosage: UNK, SINGLE
     Route: 042
     Dates: start: 20220131, end: 20220131
  4. IOMERON [Suspect]
     Active Substance: IOMEPROL
     Indication: Endoscopic retrograde cholangiopancreatography
     Dosage: 10 ML, SINGLE
     Route: 065
     Dates: start: 20220131, end: 20220131
  5. METRONIDAZOLE [Suspect]
     Active Substance: METRONIDAZOLE
     Indication: Prophylaxis
     Dosage: EVERY 8 HOURS
     Route: 042
     Dates: start: 20220126, end: 20220201
  6. PREGABALIN [Suspect]
     Active Substance: PREGABALIN
     Indication: Product used for unknown indication
     Dosage: 100 MG, QD
     Route: 048
     Dates: end: 20220202
  7. PROPOFOL LIPURO [Suspect]
     Active Substance: PROPOFOL
     Indication: Anaesthesia
     Dosage: UNK, SINGLE
     Route: 042
     Dates: start: 20220131, end: 20220131
  8. SUFENTANIL CITRATE [Suspect]
     Active Substance: SUFENTANIL CITRATE
     Indication: Anaesthesia
     Dosage: UNK, SINGLE
     Route: 042
     Dates: start: 20220131, end: 20220131
  9. IOBITRIDOL [Suspect]
     Active Substance: IOBITRIDOL
     Indication: Computerised tomogram
     Dosage: 140 ML, SINGLE
     Route: 042
     Dates: start: 20220125, end: 20220125

REACTIONS (4)
  - Neutrophilia [Recovering/Resolving]
  - Eosinophilia [Recovering/Resolving]
  - Rash maculo-papular [Recovering/Resolving]
  - Haemodynamic instability [Unknown]

NARRATIVE: CASE EVENT DATE: 20220131
